FAERS Safety Report 13616061 (Version 1)
Quarter: 2017Q2

REPORT INFORMATION
  Report Type: Spontaneous
  Country: US (occurrence: US)
  Receive Date: 20170606
  Receipt Date: 20170606
  Transmission Date: 20170830
  Serious: No
  Sender: FDA-Public Use
  Company Number: US-TEVA-697726USA

PATIENT
  Sex: Female
  Weight: 95.25 kg

DRUGS (1)
  1. CYCLOBENZAPRINE. [Suspect]
     Active Substance: CYCLOBENZAPRINE
     Indication: MUSCLE RELAXANT THERAPY
     Dosage: 3.3333 MILLIGRAM DAILY;

REACTIONS (2)
  - Drug dose omission [Unknown]
  - Somnolence [Unknown]
